FAERS Safety Report 23659138 (Version 1)
Quarter: 2024Q1

REPORT INFORMATION
  Report Type: Report from Study
  Country: GB (occurrence: GB)
  Receive Date: 20240321
  Receipt Date: 20240321
  Transmission Date: 20240410
  Serious: Yes (Other)
  Sender: FDA-Public Use
  Company Number: GB-JNJFOC-20220232593

PATIENT
  Sex: Male

DRUGS (1)
  1. BORTEZOMIB [Suspect]
     Active Substance: BORTEZOMIB
     Indication: Primary amyloidosis
     Dosage: UNK
     Route: 065
     Dates: start: 20220413

REACTIONS (6)
  - Orthostatic hypotension [Unknown]
  - Intestinal perforation [Unknown]
  - Sepsis [Unknown]
  - Performance status decreased [Unknown]
  - Product use in unapproved indication [Unknown]
  - Off label use [Unknown]
